FAERS Safety Report 14057255 (Version 1)
Quarter: 2017Q4

REPORT INFORMATION
  Report Type: Spontaneous
  Country: FR (occurrence: FR)
  Receive Date: 20171006
  Receipt Date: 20171006
  Transmission Date: 20180321
  Serious: Yes (Other)
  Sender: FDA-Public Use
  Company Number: FR-MERCK KGAA-2029076

PATIENT
  Age: 69 Year
  Sex: Female

DRUGS (2)
  1. NOVOTHYROX [Suspect]
     Active Substance: LEVOTHYROXINE SODIUM
     Indication: PRODUCT USED FOR UNKNOWN INDICATION
     Dates: start: 201703
  2. NOVOTHYROX [Suspect]
     Active Substance: LEVOTHYROXINE SODIUM
     Dates: start: 201703

REACTIONS (15)
  - Suicidal ideation [Recovered/Resolved]
  - Palpitations [None]
  - Anxiety [Recovered/Resolved]
  - Hyperchlorhydria [Recovered/Resolved]
  - Headache [None]
  - Weight increased [None]
  - Pain [Recovered/Resolved]
  - Fatigue [None]
  - Swelling [None]
  - Abdominal distension [Recovered/Resolved]
  - Tremor [None]
  - Hyperhidrosis [Recovered/Resolved]
  - Tachycardia [Recovered/Resolved]
  - Depression [Recovered/Resolved]
  - Intestinal transit time decreased [Recovered/Resolved]

NARRATIVE: CASE EVENT DATE: 2017
